FAERS Safety Report 8323372 (Version 2)
Quarter: 2013Q3

REPORT INFORMATION
  Report Type: Spontaneous
  Country: US (occurrence: US)
  Receive Date: 20120105
  Receipt Date: 20130809
  Transmission Date: 20140515
  Serious: Yes (Other)
  Sender: FDA-Public Use
  Company Number: US-ASTRAZENECA-2011SE47021

PATIENT
  Age: 53 Year
  Sex: Female
  Weight: 72.6 kg

DRUGS (15)
  1. SEROQUEL [Suspect]
     Indication: DEPRESSION
     Route: 048
     Dates: end: 20110726
  2. SEROQUEL [Suspect]
     Indication: BIPOLAR DISORDER
     Route: 048
     Dates: end: 20110726
  3. SEROQUEL [Suspect]
     Indication: DEPRESSION
     Route: 048
  4. SEROQUEL [Suspect]
     Indication: BIPOLAR DISORDER
     Route: 048
  5. SEROQUEL [Suspect]
     Indication: DEPRESSION
     Route: 048
  6. SEROQUEL [Suspect]
     Indication: BIPOLAR DISORDER
     Route: 048
  7. SEROQUEL [Suspect]
     Indication: DEPRESSION
     Route: 048
  8. SEROQUEL [Suspect]
     Indication: BIPOLAR DISORDER
     Route: 048
  9. SEROQUEL [Suspect]
     Indication: DEPRESSION
     Route: 048
  10. SEROQUEL [Suspect]
     Indication: BIPOLAR DISORDER
     Route: 048
  11. ARIMIDEX [Suspect]
     Indication: BREAST CANCER FEMALE
     Route: 048
  12. LITHIUM [Concomitant]
     Indication: AFFECTIVE DISORDER
  13. CLONIPIN [Concomitant]
     Indication: BIPOLAR DISORDER
  14. EFFEXOR XR [Concomitant]
     Indication: BIPOLAR DISORDER
  15. LAMICTAL [Concomitant]

REACTIONS (10)
  - Suicidal behaviour [Unknown]
  - Insomnia [Unknown]
  - Feeling abnormal [Unknown]
  - Feeling drunk [Unknown]
  - Headache [Unknown]
  - Hypersomnia [Unknown]
  - Somnolence [Unknown]
  - Drug dose omission [Unknown]
  - Drug dispensing error [Unknown]
  - Off label use [Unknown]
